FAERS Safety Report 4905431-9 (Version None)
Quarter: 2006Q1

REPORT INFORMATION
  Report Type: 
  Country: None (occurrence: None)
  Receive Date: 20060208
  Receipt Date: 20060131
  Transmission Date: 20060701
  Serious: Yes (Disabling)
  Sender: FDA-Public Use
  Company Number: US-MERCK-0602USA00079

PATIENT
  Sex: Male

DRUGS (1)
  1. VIOXX [Suspect]
     Route: 048
     Dates: start: 20010901

REACTIONS (6)
  - ANHEDONIA [None]
  - CARDIAC DISORDER [None]
  - CONDITION AGGRAVATED [None]
  - FEAR OF DISEASE [None]
  - MYOCARDIAL INFARCTION [None]
  - NONSPECIFIC REACTION [None]
